FAERS Safety Report 16122412 (Version 1)
Quarter: 2019Q2

REPORT INFORMATION
  Report Type: Spontaneous
  Country: US (occurrence: US)
  Receive Date: 20190326
  Receipt Date: 20190326
  Transmission Date: 20190711
  Serious: No
  Sender: FDA-Public Use
  Company Number: None

PATIENT
  Sex: Female

DRUGS (3)
  1. LORADINE [Concomitant]
     Active Substance: LORATADINE
  2. TOPAMAX [Suspect]
     Active Substance: TOPIRAMATE
     Indication: MIGRAINE
     Dosage: ?          QUANTITY:3 CAPSULE(S);?
     Route: 048
     Dates: start: 20190102, end: 20190226
  3. IBUPROFEN. [Concomitant]
     Active Substance: IBUPROFEN

REACTIONS (5)
  - Abdominal discomfort [None]
  - Panic attack [None]
  - Dehydration [None]
  - Confusional state [None]
  - Vomiting [None]

NARRATIVE: CASE EVENT DATE: 20190226
